FAERS Safety Report 8797423 (Version 1)
Quarter: 2012Q4

REPORT INFORMATION
  Report Type: 
  Country: US (occurrence: US)
  Receive Date: 20120920
  Receipt Date: 20120920
  Transmission Date: 20130627
  Serious: No
  Sender: FDA-Public Use
  Company Number: US-PFIZER INC-2012228420

PATIENT
  Age: 36 Year
  Sex: Male
  Weight: 97.51 kg

DRUGS (1)
  1. VIAGRA [Suspect]
     Indication: ERECTILE DYSFUNCTION
     Dosage: 50 mg, as needed
     Route: 048
     Dates: start: 20120913

REACTIONS (2)
  - Hypoaesthesia [Unknown]
  - Anorgasmia [Unknown]
